FAERS Safety Report 16036907 (Version 4)
Quarter: 2019Q1

REPORT INFORMATION
  Report Type: Report from Study
  Country: CA (occurrence: CA)
  Receive Date: 20190305
  Receipt Date: 20190326
  Transmission Date: 20190418
  Serious: Yes (Other)
  Sender: FDA-Public Use
  Company Number: CA-PFIZER INC-2018303539

PATIENT
  Age: 59 Year
  Sex: Female

DRUGS (16)
  1. STELARA [Concomitant]
     Active Substance: USTEKINUMAB
     Dosage: UNK
     Dates: start: 2016, end: 2017
  2. COSENTYX [Suspect]
     Active Substance: SECUKINUMAB
     Dosage: 300 MG, MONTHLY
     Route: 058
     Dates: start: 20180923
  3. PANTOPRAZOLE [Concomitant]
     Active Substance: PANTOPRAZOLE
     Indication: ABDOMINAL DISCOMFORT
     Dosage: 40 MG, QD
     Route: 048
     Dates: start: 201508
  4. ORENCIA [Concomitant]
     Active Substance: ABATACEPT
     Dosage: UNK
     Dates: start: 2017, end: 20180523
  5. COSENTYX [Suspect]
     Active Substance: SECUKINUMAB
     Dosage: UNK
     Route: 050
     Dates: start: 20180723
  6. TOPAMAX [Suspect]
     Active Substance: TOPIRAMATE
     Dosage: UNK
     Route: 065
     Dates: end: 201810
  7. CORTISONE [Concomitant]
     Active Substance: CORTISONE\HYDROCORTISONE
     Dosage: UNK
     Dates: start: 2015, end: 2015
  8. DICLOFENAC [Concomitant]
     Active Substance: DICLOFENAC
     Dosage: 100 MG, QD
     Route: 065
     Dates: start: 2015
  9. CIMZIA [Concomitant]
     Active Substance: CERTOLIZUMAB PEGOL
     Dosage: UNK
     Dates: start: 2016, end: 2016
  10. TYLENOL [Concomitant]
     Active Substance: ACETAMINOPHEN
     Indication: ARTHRITIS
     Dosage: 650 MG, UNK
     Dates: start: 2015
  11. METFORMIN [Concomitant]
     Active Substance: METFORMIN HYDROCHLORIDE
     Indication: DIABETES MELLITUS
     Dosage: 2 DF, QD
     Route: 048
     Dates: start: 2017
  12. PREGABALIN. [Concomitant]
     Active Substance: PREGABALIN
     Dosage: 50 MG (2 DF), 1X/DAY
     Route: 048
     Dates: start: 20180524
  13. SIMPONI [Concomitant]
     Active Substance: GOLIMUMAB
     Dosage: UNK
     Dates: start: 2017, end: 2017
  14. COSENTYX [Suspect]
     Active Substance: SECUKINUMAB
     Indication: PSORIATIC ARTHROPATHY
     Dosage: 300 MG, 1/WEEK
     Route: 058
     Dates: start: 20180625
  15. COSENTYX [Suspect]
     Active Substance: SECUKINUMAB
     Dosage: 300 MG, 1/WEEK
     Route: 058
     Dates: start: 20180716
  16. TYLENOL [Concomitant]
     Active Substance: ACETAMINOPHEN
     Indication: ANALGESIC THERAPY

REACTIONS (16)
  - Gait disturbance [Unknown]
  - Mobility decreased [Unknown]
  - Mouth ulceration [Unknown]
  - Drug ineffective [Unknown]
  - Pain in extremity [Unknown]
  - Blood glucose increased [Unknown]
  - Psoriatic arthropathy [Unknown]
  - Fibromyalgia [Unknown]
  - Oropharyngeal pain [Unknown]
  - Speech disorder [Unknown]
  - Dysgeusia [Unknown]
  - Peripheral swelling [Unknown]
  - Sleep disorder [Recovered/Resolved]
  - Arthralgia [Recovering/Resolving]
  - Limb discomfort [Unknown]
  - Arthropathy [Unknown]

NARRATIVE: CASE EVENT DATE: 201807
